FAERS Safety Report 6928664-9 (Version None)
Quarter: 2010Q3

REPORT INFORMATION
  Report Type: 
  Country: None (occurrence: None)
  Receive Date: 20100817
  Receipt Date: 20100809
  Transmission Date: 20110219
  Serious: Yes (Hospitalization)
  Sender: FDA-Public Use
  Company Number: A0857539B

PATIENT
  Age: 72 Year
  Sex: Female
  Weight: 73.2 kg

DRUGS (4)
  1. LAPATINIB [Suspect]
     Indication: BREAST CANCER
     Dosage: 750MG PER DAY
     Route: 048
     Dates: start: 20100427
  2. TRASTUZUMAB [Suspect]
     Indication: BREAST CANCER
     Dosage: 4MGK WEEKLY
     Route: 042
     Dates: start: 20100427
  3. DOCETAXEL [Suspect]
     Indication: BREAST CANCER
     Dosage: 75MGM2 CYCLIC
     Route: 042
     Dates: start: 20100427
  4. CARBOPLATIN [Suspect]
     Indication: BREAST CANCER
     Route: 042
     Dates: start: 20100427

REACTIONS (8)
  - DEHYDRATION [None]
  - DIARRHOEA [None]
  - FAECAL INCONTINENCE [None]
  - NAUSEA [None]
  - NEUTROPENIA [None]
  - PYREXIA [None]
  - RESPIRATORY TRACT CONGESTION [None]
  - SPUTUM DISCOLOURED [None]
